FAERS Safety Report 4313491-1 (Version None)
Quarter: 2004Q1

REPORT INFORMATION
  Report Type: 
  Country: None (occurrence: None)
  Receive Date: 20040308
  Receipt Date: 20040226
  Transmission Date: 20041129
  Serious: Yes (Death)
  Sender: FDA-Public Use
  Company Number: JP-ROCHE-359982

PATIENT
  Age: 9 Year
  Sex: Male

DRUGS (1)
  1. TAMIFLU [Suspect]
     Dosage: DESCRIBED AS 9 TIMES.
     Route: 048
     Dates: start: 20040216, end: 20040219

REACTIONS (1)
  - PANCREATITIS ACUTE [None]
